FAERS Safety Report 12012388 (Version 1)
Quarter: 2016Q1

REPORT INFORMATION
  Report Type: Spontaneous
  Country: GB (occurrence: GB)
  Receive Date: 20160205
  Receipt Date: 20160205
  Transmission Date: 20160526
  Serious: Yes (Hospitalization, Disabling)
  Sender: FDA-Public Use
  Company Number: GB-GLAXOSMITHKLINE-GB2016013796

PATIENT
  Age: 73 Year
  Sex: Female

DRUGS (1)
  1. RELVAR ELLIPTA [Suspect]
     Active Substance: FLUTICASONE FUROATE\VILANTEROL TRIFENATATE
     Dosage: 92/22
     Route: 055
     Dates: start: 20160121

REACTIONS (3)
  - Aphonia [Unknown]
  - Dyspnoea [Unknown]
  - Bronchospasm paradoxical [Unknown]

NARRATIVE: CASE EVENT DATE: 20160122
